FAERS Safety Report 7756855-6 (Version None)
Quarter: 2011Q3

REPORT INFORMATION
  Report Type: 
  Country: None (occurrence: None)
  Receive Date: 20110916
  Receipt Date: 20110912
  Transmission Date: 20111222
  Serious: Yes (Hospitalization, Other)
  Sender: FDA-Public Use
  Company Number: US-TEVA-300336USA

PATIENT
  Sex: Female
  Weight: 98.064 kg

DRUGS (12)
  1. COPAXONE [Suspect]
     Indication: MULTIPLE SCLEROSIS
     Dosage: 20 MILLIGRAM;
     Route: 058
     Dates: start: 20090903
  2. MONTELUKAST SODIUM [Concomitant]
  3. ARIPIPRAZOLE [Concomitant]
  4. DOXYCYCLINE [Concomitant]
  5. TOPIRAMATE [Concomitant]
  6. OXCARBAZEPINE [Concomitant]
  7. CITALOPRAM HYDROBROMIDE [Concomitant]
  8. DONEPEZIL HYDROCHLORIDE [Concomitant]
  9. CETIRIZINE HCL [Concomitant]
  10. GABAPENTIN [Concomitant]
  11. ALPRAZOLAM [Concomitant]
  12. METHYLPHENIDATE HYDROCHLORIDE SR [Concomitant]

REACTIONS (2)
  - PULMONARY EMBOLISM [None]
  - DEEP VEIN THROMBOSIS [None]
